FAERS Safety Report 19190891 (Version 1)
Quarter: 2021Q2

REPORT INFORMATION
  Report Type: Spontaneous
  Country: US (occurrence: US)
  Receive Date: 20210428
  Receipt Date: 20210428
  Transmission Date: 20210717
  Serious: Yes (Other)
  Sender: FDA-Public Use
  Company Number: NVSC2021US091004

PATIENT
  Age: 49 Year
  Sex: Male

DRUGS (2)
  1. NOREPINEPHRINE. [Suspect]
     Active Substance: NOREPINEPHRINE
     Dosage: VERY HIGH DOSE
     Route: 065
  2. NOREPINEPHRINE. [Suspect]
     Active Substance: NOREPINEPHRINE
     Indication: SEPTIC SHOCK
     Dosage: NOREPINEPHRINE INFUSION
     Route: 041

REACTIONS (1)
  - Left ventricle outflow tract obstruction [Not Recovered/Not Resolved]
